FAERS Safety Report 14967062 (Version 1)
Quarter: 2018Q2

REPORT INFORMATION
  Report Type: Report from Study
  Country: CN (occurrence: CN)
  Receive Date: 20180604
  Receipt Date: 20180604
  Transmission Date: 20180711
  Serious: Yes (Death, Other)
  Sender: FDA-Public Use
  Company Number: CN-CHEPLA-C20170324

PATIENT

DRUGS (7)
  1. ARSENIC TRIOXIDE [Suspect]
     Active Substance: ARSENIC TRIOXIDE
  2. CYTARABINE. [Suspect]
     Active Substance: CYTARABINE
  3. IDARUBICIN [Suspect]
     Active Substance: IDARUBICIN
     Dosage: 8-10 MG/M2/DAY
  4. ATRA [Suspect]
     Active Substance: TRETINOIN
     Indication: ACUTE PROMYELOCYTIC LEUKAEMIA
  5. DAUNORUBICIN [Suspect]
     Active Substance: DAUNORUBICIN
     Dosage: 40-50 MG / D
  6. MITOXANTRONE [Suspect]
     Active Substance: MITOXANTRONE HYDROCHLORIDE
     Dosage: 6-8 MG/M2/DAY
  7. HOMOHARRINGTONINE [Suspect]
     Active Substance: OMACETAXINE MEPESUCCINATE

REACTIONS (2)
  - Drug resistance [Fatal]
  - Leukaemia recurrent [Fatal]
